FAERS Safety Report 14767011 (Version 1)
Quarter: 2018Q2

REPORT INFORMATION
  Report Type: Spontaneous
  Country: US (occurrence: US)
  Receive Date: 20180417
  Receipt Date: 20180417
  Transmission Date: 20180711
  Serious: Yes (Hospitalization, Other)
  Sender: FDA-Public Use
  Company Number: US-AMGEN-USASP2018048337

PATIENT
  Age: 61 Year
  Sex: Female

DRUGS (2)
  1. XANAX [Concomitant]
     Active Substance: ALPRAZOLAM
     Dosage: UNK
  2. ENBREL [Suspect]
     Active Substance: ETANERCEPT
     Indication: RHEUMATOID ARTHRITIS
     Dosage: 50 MG, QWK (THURSDAY)
     Route: 065

REACTIONS (11)
  - Pain [Unknown]
  - Syncope [Unknown]
  - Fall [Unknown]
  - Accidental exposure to product [Unknown]
  - Feeling abnormal [Unknown]
  - Abdominal pain upper [Unknown]
  - Memory impairment [Unknown]
  - Injection site bruising [Unknown]
  - Musculoskeletal disorder [Unknown]
  - Gastric bypass [Unknown]
  - Injection site haemorrhage [Unknown]

NARRATIVE: CASE EVENT DATE: 2018
